FAERS Safety Report 6463217-0 (Version None)
Quarter: 2009Q4

REPORT INFORMATION
  Report Type: 
  Country: None (occurrence: None)
  Receive Date: 20091130
  Receipt Date: 20090518
  Transmission Date: 20100525
  Serious: Yes (Hospitalization, Other)
  Sender: FDA-Public Use
  Company Number: US-AMGEN-QUU347576

PATIENT
  Sex: Male

DRUGS (1)
  1. ENBREL [Suspect]
     Indication: PSORIATIC ARTHROPATHY
     Route: 058

REACTIONS (5)
  - ABDOMINAL DISCOMFORT [None]
  - EYE HAEMORRHAGE [None]
  - OCULAR HYPERAEMIA [None]
  - PNEUMONIA [None]
  - VOMITING [None]
